FAERS Safety Report 16896553 (Version 1)
Quarter: 2019Q4

REPORT INFORMATION
  Report Type: Spontaneous
  Country: US (occurrence: US)
  Receive Date: 20191008
  Receipt Date: 20191008
  Transmission Date: 20200122
  Serious: No
  Sender: FDA-Public Use
  Company Number: US-TARO-2018TAR00668

PATIENT
  Age: 4 Month
  Sex: Female
  Weight: 5.44 kg

DRUGS (1)
  1. LORATADINE SYRUP (LORATADINE ORAL SOLUTION USP) 5MG/5ML [Suspect]
     Active Substance: LORATADINE
     Indication: BREATH SOUNDS ABNORMAL
     Dosage: UNK, 1X/DAY
     Dates: start: 20180904, end: 20180905

REACTIONS (4)
  - Product administered to patient of inappropriate age [Recovered/Resolved]
  - Off label use [Recovered/Resolved]
  - Eating disorder symptom [Unknown]
  - Vomiting [Unknown]

NARRATIVE: CASE EVENT DATE: 201809
